FAERS Safety Report 5067051-8 (Version None)
Quarter: 2006Q3

REPORT INFORMATION
  Report Type: 
  Country: None (occurrence: None)
  Receive Date: 20060801
  Receipt Date: 20060109
  Transmission Date: 20061208
  Serious: Yes (Other)
  Sender: FDA-Public Use
  Company Number: US-BAYER-200610153BCC

PATIENT
  Age: 76 Year
  Sex: Female
  Weight: 113 kg

DRUGS (12)
  1. ALEVE (CAPLET) [Suspect]
     Indication: BACK PAIN
     Dosage: UNIT DOSE: 220 MG
     Route: 048
  2. ALEVE (CAPLET) [Suspect]
     Dosage: UNIT DOSE: 220 MG
     Route: 048
     Dates: start: 19950101, end: 20050608
  3. REGIMEN BAYER [Suspect]
     Indication: PROPHYLAXIS
     Dosage: TOTAL DAILY DOSE: 325 MG  UNIT DOSE: 325 MG
     Route: 048
  4. ZOCOR [Concomitant]
  5. TRIAMTERENE [Concomitant]
  6. ATENOLOL [Concomitant]
  7. FLOVENT [Concomitant]
  8. ALBUTEROL SPIROS [Concomitant]
  9. FORADIL [Concomitant]
  10. MULTIVITAMIN SUPPLEMENT [Concomitant]
  11. VITAMIN E SUPPLEMENT [Concomitant]
  12. NEXIUM [Concomitant]

REACTIONS (3)
  - PROTEIN URINE PRESENT [None]
  - RENAL ATROPHY [None]
  - RENAL DISORDER [None]
